FAERS Safety Report 13577064 (Version 2)
Quarter: 2017Q2

REPORT INFORMATION
  Report Type: Spontaneous
  Country: US (occurrence: US)
  Receive Date: 20170524
  Receipt Date: 20170607
  Transmission Date: 20170830
  Serious: No
  Sender: FDA-Public Use
  Company Number: US-PFIZER INC-2017227076

PATIENT
  Sex: Female

DRUGS (1)
  1. XALATAN [Suspect]
     Active Substance: LATANOPROST
     Dosage: UNK

REACTIONS (3)
  - Lacrimation increased [Unknown]
  - Eye colour change [Recovered/Resolved]
  - Secretion discharge [Unknown]
